FAERS Safety Report 21314369 (Version 1)
Quarter: 2022Q3

REPORT INFORMATION
  Report Type: Spontaneous
  Country: US (occurrence: None)
  Receive Date: 20220909
  Receipt Date: 20220909
  Transmission Date: 20221027
  Serious: No
  Sender: FDA-Public Use
  Company Number: US-ARIS GLOBAL-202110-1828

PATIENT
  Sex: Female

DRUGS (10)
  1. OXERVATE [Suspect]
     Active Substance: CENEGERMIN-BKBJ
     Indication: Neurotrophic keratopathy
     Route: 047
     Dates: start: 20210920
  2. OXERVATE [Suspect]
     Active Substance: CENEGERMIN-BKBJ
     Indication: Ulcerative keratitis
  3. CALCIUM\CHOLECALCIFEROL [Concomitant]
     Active Substance: CALCIUM\CHOLECALCIFEROL
     Dosage: 600 MG-12.5 TABLET EXTENDED RELEASE
  4. MULTIVITAMIN 50 PLUS [Concomitant]
  5. FISH OIL [Concomitant]
     Active Substance: FISH OIL
     Dosage: 100-150 MG
  6. ACTEMRA [Concomitant]
     Active Substance: TOCILIZUMAB
     Dosage: 162 MG/0.9 SYRINGE
  7. CARVEDILOL [Concomitant]
     Active Substance: CARVEDILOL
  8. MELOXICAM [Concomitant]
     Active Substance: MELOXICAM
  9. PREDNISONE [Concomitant]
     Active Substance: PREDNISONE
  10. RESTASIS [Concomitant]
     Active Substance: CYCLOSPORINE
     Dosage: 0.05 % DROPERETTE

REACTIONS (3)
  - Eyelid pain [Unknown]
  - Dry eye [Recovering/Resolving]
  - Product use issue [Unknown]
